FAERS Safety Report 14683677 (Version 2)
Quarter: 2018Q2

REPORT INFORMATION
  Report Type: Spontaneous
  Country: IT (occurrence: IT)
  Receive Date: 20180327
  Receipt Date: 20180403
  Transmission Date: 20180711
  Serious: Yes (Other)
  Sender: FDA-Public Use
  Company Number: IT-THROMBOGENICS-SPO-2018-2517

PATIENT
  Age: 75 Year
  Sex: Female

DRUGS (1)
  1. JETREA [Suspect]
     Active Substance: OCRIPLASMIN
     Indication: VITREOMACULAR INTERFACE ABNORMAL
     Dosage: 0.125 MG, ONE TIME DOSE
     Route: 031
     Dates: start: 20141110, end: 20141110

REACTIONS (1)
  - Optical coherence tomography abnormal [Recovered/Resolved]

NARRATIVE: CASE EVENT DATE: 20141117
